FAERS Safety Report 8541029-1 (Version None)
Quarter: 2012Q3

REPORT INFORMATION
  Report Type: 
  Country: None (occurrence: None)
  Receive Date: 20120726
  Receipt Date: 20120720
  Transmission Date: 20120928
  Serious: Yes (Hospitalization)
  Sender: FDA-Public Use
  Company Number: CZ-NAPPMUNDI-GBR-2012-0011036

PATIENT
  Sex: Female

DRUGS (4)
  1. MELOXICAM [Concomitant]
  2. OXYCONTIN [Suspect]
     Indication: PRODUCT USED FOR UNKNOWN INDICATION
     Route: 048
  3. PARALEN                            /00020001/ [Concomitant]
  4. METOCLOPRAMIDE [Concomitant]

REACTIONS (1)
  - DRUG ERUPTION [None]
